FAERS Safety Report 19470349 (Version 1)
Quarter: 2021Q2

REPORT INFORMATION
  Report Type: Spontaneous
  Country: US (occurrence: US)
  Receive Date: 20210628
  Receipt Date: 20210628
  Transmission Date: 20210717
  Serious: Yes (Life-Threatening, Hospitalization, Other)
  Sender: FDA-Public Use
  Company Number: US-PROCTER+GAMBLE-PH21005038

PATIENT
  Age: 21 Year
  Sex: Female

DRUGS (3)
  1. AMITRIPTYLINE [Suspect]
     Active Substance: AMITRIPTYLINE
     Indication: SUICIDE ATTEMPT
  2. DIPHENHYDRAMINE HCL [Suspect]
     Active Substance: DIPHENHYDRAMINE HYDROCHLORIDE
     Dosage: SYRUP
     Route: 048
  3. CODEINE [Suspect]
     Active Substance: CODEINE
     Indication: NASOPHARYNGITIS
     Dosage: SYRUP
     Route: 048

REACTIONS (14)
  - Epistaxis [Unknown]
  - Urine amphetamine positive [Unknown]
  - Tachycardia [Unknown]
  - Opiates positive [Unknown]
  - Encephalopathy [Recovering/Resolving]
  - Oxygen saturation decreased [Unknown]
  - Unresponsive to stimuli [Recovering/Resolving]
  - Overdose [Unknown]
  - Drug screen positive [Unknown]
  - Hypertension [Unknown]
  - Respiratory rate decreased [Unknown]
  - Contusion [Unknown]
  - Miosis [Unknown]
  - Montreal cognitive assessment abnormal [Recovering/Resolving]
